FAERS Safety Report 5656206-7 (Version None)
Quarter: 2008Q1

REPORT INFORMATION
  Report Type: 
  Country: None (occurrence: None)
  Receive Date: 20080305
  Receipt Date: 20080221
  Transmission Date: 20080703
  Serious: Yes (Other)
  Sender: FDA-Public Use
  Company Number: 08H-163 -0313912-00

PATIENT
  Age: 45 Year
  Sex: Female
  Weight: 56.6996 kg

DRUGS (7)
  1. HEPARIN SODIUM [Suspect]
     Indication: PERIPHERAL EMBOLISM
     Dosage: 50 UNITS/ML; INTRAVENOUS
     Route: 042
     Dates: start: 20080118, end: 20080123
  2. HEPARIN SODIUM [Suspect]
     Indication: PERIPHERAL EMBOLISM
     Dosage: 1000 UNITS/ML, ONCE, INTRAVENOUS
     Route: 042
     Dates: start: 20080118, end: 20080123
  3. ADVAIR (SERETIDE) [Concomitant]
  4. CALCIUM (CLACIUM) [Concomitant]
  5. ASPIRIN [Concomitant]
  6. TAMOXIFEN CITRATE [Concomitant]
  7. COUMADIN [Concomitant]

REACTIONS (11)
  - ABDOMINAL PAIN [None]
  - ASTHENIA [None]
  - BLOOD PRESSURE DECREASED [None]
  - DIARRHOEA [None]
  - HEADACHE [None]
  - HYPERHIDROSIS [None]
  - LOSS OF CONSCIOUSNESS [None]
  - NAUSEA [None]
  - TREMOR [None]
  - VOMITING [None]
  - WHEELCHAIR USER [None]
